FAERS Safety Report 5897906-3 (Version None)
Quarter: 2008Q3

REPORT INFORMATION
  Report Type: 
  Country: None (occurrence: None)
  Receive Date: 20080925
  Receipt Date: 20080919
  Transmission Date: 20090109
  Serious: Yes (Hospitalization)
  Sender: FDA-Public Use
  Company Number: BR-ASTRAZENECA-2008UW19790

PATIENT
  Age: 29418 Day
  Sex: Female
  Weight: 67 kg

DRUGS (2)
  1. FASLODEX [Suspect]
     Indication: BREAST CANCER
     Route: 030
     Dates: start: 20060501, end: 20070111
  2. ADALAT [Concomitant]
     Indication: HYPERTENSION
     Route: 048

REACTIONS (1)
  - INTESTINAL FUNCTIONAL DISORDER [None]
